FAERS Safety Report 6942676-0 (Version None)
Quarter: 2010Q3

REPORT INFORMATION
  Report Type: 
  Country: None (occurrence: None)
  Receive Date: 20100826
  Receipt Date: 20100816
  Transmission Date: 20110219
  Serious: Yes (Other)
  Sender: FDA-Public Use
  Company Number: PHHY2010US54599

PATIENT
  Sex: Female

DRUGS (1)
  1. CLOZAPINE [Suspect]

REACTIONS (2)
  - ALVEOLITIS ALLERGIC [None]
  - CHRONIC RESPIRATORY DISEASE [None]
